FAERS Safety Report 16503807 (Version 3)
Quarter: 2019Q3

REPORT INFORMATION
  Report Type: Spontaneous
  Country: US (occurrence: US)
  Receive Date: 20190701
  Receipt Date: 20190710
  Transmission Date: 20191004
  Serious: No
  Sender: FDA-Public Use
  Company Number: US-PFIZER INC-2019269245

PATIENT
  Age: 46 Year
  Sex: Male

DRUGS (2)
  1. REVATIO [Suspect]
     Active Substance: SILDENAFIL CITRATE
     Dosage: 40MG, THREE TIMES A DAY
     Route: 048
     Dates: start: 201905
  2. REVATIO [Suspect]
     Active Substance: SILDENAFIL CITRATE
     Indication: PULMONARY HYPERTENSION
     Dosage: LOWER DOSE
     Route: 048

REACTIONS (2)
  - Off label use [Unknown]
  - Drug ineffective [Unknown]
